FAERS Safety Report 21097785 (Version 1)
Quarter: 2022Q3

REPORT INFORMATION
  Report Type: Spontaneous
  Country: IR (occurrence: None)
  Receive Date: 20220719
  Receipt Date: 20220719
  Transmission Date: 20221026
  Serious: Yes (Hospitalization, Other)
  Sender: FDA-Public Use
  Company Number: IR-VistaPharm, Inc.-VER202207-000574

PATIENT
  Age: 44 Year
  Sex: Male

DRUGS (2)
  1. METHADONE [Suspect]
     Active Substance: METHADONE HYDROCHLORIDE
     Indication: Product used for unknown indication
     Dosage: UNKNOWN
     Route: 065
  2. DEXAMETHASONE [Concomitant]
     Active Substance: DEXAMETHASONE
     Indication: Product used for unknown indication
     Dosage: UNKNOWN
     Route: 065

REACTIONS (9)
  - Aspiration [Unknown]
  - Brain abscess [Unknown]
  - Lung abscess [Unknown]
  - Drug abuse [Unknown]
  - Bradycardia [Unknown]
  - Agitation [Unknown]
  - Confusional state [Unknown]
  - Miosis [Unknown]
  - Toxicity to various agents [Unknown]
